FAERS Safety Report 4621148-2 (Version None)
Quarter: 2005Q1

REPORT INFORMATION
  Report Type: 
  Country: None (occurrence: None)
  Receive Date: 20050328
  Receipt Date: 20050315
  Transmission Date: 20050727
  Serious: Yes (Death, Hospitalization, Other)
  Sender: FDA-Public Use
  Company Number: 2005019230

PATIENT
  Age: 76 Year
  Sex: Female
  Weight: 63.5 kg

DRUGS (20)
  1. VORICONAZOLE             (VORICONAZOLE) [Suspect]
     Indication: BRONCHOPULMONARY ASPERGILLOSIS
     Dosage: 700 MG (350 MG, 1 IN 12 HR), INTRAVENOUS
     Route: 042
     Dates: start: 20050118, end: 20050121
  2. AMPHOTERICIN B [Suspect]
     Indication: BRONCHOPULMONARY ASPERGILLOSIS
     Dosage: 10 MG, INTRAVENOUS
     Route: 042
     Dates: start: 20050112, end: 20050121
  3. VANCOMYCIN [Suspect]
     Indication: STAPHYLOCOCCAL INFECTION
     Dosage: 2 GRAM (1 GRAM, 1 IN 12 HR), INTRAVENOUS
     Route: 042
     Dates: start: 20050111, end: 20050117
  4. MOXIFLOXACIN HCL [Concomitant]
  5. PREDNISONE [Concomitant]
  6. LEPIRUDIN (LEPIRUDIN) [Concomitant]
  7. MAGNESIUM SULFATE [Concomitant]
  8. ERYTHROMYCIN [Concomitant]
  9. NYSTATIN [Concomitant]
  10. FENTANYL [Concomitant]
  11. FAMOTIDINE [Concomitant]
  12. HEPARIN [Concomitant]
  13. LATANOPROST [Concomitant]
  14. BRIMONIDINE (BRIMONIDINE) [Concomitant]
  15. PHYTONADIONE [Concomitant]
  16. SOLUTIONS FOR PARENTERAL NUTRITION [Concomitant]
  17. METHYLPREDNISOLONE SODIUM SUCCINATE [Concomitant]
  18. GATIFLOXACIN [Concomitant]
  19. MINDAZOLAM HYDROCHLORIDE (MIDAZOLAM HYDROCHLORIDE) [Concomitant]
  20. SODIUM CHLORIDE 0.9% [Concomitant]

REACTIONS (5)
  - ANURIA [None]
  - BRONCHOPULMONARY ASPERGILLOSIS [None]
  - HAEMODIALYSIS [None]
  - RENAL IMPAIRMENT [None]
  - WEIGHT INCREASED [None]
